FAERS Safety Report 14871952 (Version 1)
Quarter: 2018Q2

REPORT INFORMATION
  Report Type: Spontaneous
  Country: FR (occurrence: FR)
  Receive Date: 20180509
  Receipt Date: 20180509
  Transmission Date: 20180711
  Serious: Yes (Other)
  Sender: FDA-Public Use
  Company Number: FR-ROCHE-2120164

PATIENT
  Age: 48 Year
  Sex: Male
  Weight: 85 kg

DRUGS (10)
  1. COPEGUS [Suspect]
     Active Substance: RIBAVIRIN
     Indication: CHRONIC HEPATITIS C
     Dosage: LAST DOSE ON 29/AUG/2014
     Route: 048
     Dates: start: 20140314
  2. LASILIX [Concomitant]
     Active Substance: FUROSEMIDE
     Route: 048
  3. DUPHALAC (FRANCE) [Concomitant]
     Active Substance: LACTULOSE
     Route: 048
  4. RIFAXIMINE [Concomitant]
     Route: 048
  5. METHADONE [Concomitant]
     Active Substance: METHADONE HYDROCHLORIDE
     Route: 048
  6. SOVALDI [Suspect]
     Active Substance: SOFOSBUVIR
     Indication: CHRONIC HEPATITIS C
     Dosage: LAST DOSE ON 29/AUG/2014
     Route: 048
     Dates: start: 20140314
  7. ZOPHREN [Concomitant]
     Active Substance: ONDANSETRON
     Route: 048
  8. TARDYFERON (FRANCE) [Concomitant]
     Active Substance: FERROUS SULFATE\GASTRIC MUCIN
     Route: 048
  9. METEOSPASMYL (ALVERINE CITRATE\DIMETHICONE) [Concomitant]
     Active Substance: ALVERINE CITRATE\DIMETHICONE
     Route: 048
  10. ALDACTONE [Concomitant]
     Active Substance: SPIRONOLACTONE
     Route: 048

REACTIONS (3)
  - Drug ineffective [Unknown]
  - Hepatitis C [Not Recovered/Not Resolved]
  - Hepatitis C RNA positive [Not Recovered/Not Resolved]

NARRATIVE: CASE EVENT DATE: 20150311
